FAERS Safety Report 10685234 (Version 1)
Quarter: 2014Q4

REPORT INFORMATION
  Report Type: Spontaneous
  Country: US (occurrence: US)
  Receive Date: 20141231
  Receipt Date: 20141231
  Transmission Date: 20150529
  Serious: Yes (Other)
  Sender: FDA-Public Use
  Company Number: US-ENDO PHARMACEUTICALS INC-PINX20140167

PATIENT
  Age: 36 Year
  Sex: Male
  Weight: 90.8 kg

DRUGS (1)
  1. PIN-X [Suspect]
     Active Substance: PYRANTEL PAMOATE
     Indication: INFECTION PROPHYLAXIS
     Route: 048
     Dates: start: 20141219, end: 20141219

REACTIONS (2)
  - Anaphylactic shock [Recovered/Resolved]
  - Prescribed overdose [Recovered/Resolved]

NARRATIVE: CASE EVENT DATE: 20141219
